FAERS Safety Report 16809499 (Version 1)
Quarter: 2019Q3

REPORT INFORMATION
  Report Type: Spontaneous
  Country: US (occurrence: US)
  Receive Date: 20190916
  Receipt Date: 20190916
  Transmission Date: 20191005
  Serious: Yes (Death, Hospitalization, Other)
  Sender: FDA-Public Use
  Company Number: US-ALEMBIC PHARMACUETICALS LIMITED-2019SCAL000645

PATIENT

DRUGS (3)
  1. ARIPIPRAZOLE. [Suspect]
     Active Substance: ARIPIPRAZOLE
     Indication: PRODUCT USED FOR UNKNOWN INDICATION
     Dosage: 20 TABLETS
  2. COLCHICINE. [Suspect]
     Active Substance: COLCHICINE
     Indication: PRODUCT USED FOR UNKNOWN INDICATION
     Dosage: 60 TABLETS
  3. LORAZEPAM. [Suspect]
     Active Substance: LORAZEPAM
     Indication: PRODUCT USED FOR UNKNOWN INDICATION
     Dosage: 28 TABLETS

REACTIONS (10)
  - Depressed level of consciousness [Unknown]
  - Vomiting [Unknown]
  - Somnolence [Unknown]
  - Blood creatinine increased [Unknown]
  - Blood bicarbonate decreased [Unknown]
  - Overdose [Unknown]
  - Cardiac dysfunction [Unknown]
  - Diarrhoea [Unknown]
  - Cardiac arrest [Fatal]
  - Heart rate increased [Unknown]
